FAERS Safety Report 6688263-3 (Version None)
Quarter: 2010Q2

REPORT INFORMATION
  Report Type: 
  Country: None (occurrence: None)
  Receive Date: 20100409
  Receipt Date: 20100330
  Transmission Date: 20101027
  Serious: Yes (Other)
  Sender: FDA-Public Use
  Company Number: 2009-189164-NL

PATIENT
  Sex: Male
  Weight: 80 kg

DRUGS (4)
  1. MIRTAZAPINE [Suspect]
     Indication: DEPRESSED MOOD
  2. NALTREXONE HYDROCHLORIDE [Suspect]
     Dosage: ;PO
     Route: 048
  3. METHADONE HCL [Suspect]
     Indication: DETOXIFICATION
     Dosage: 1 DF PO
     Route: 048
     Dates: start: 20041004
  4. ETHANOL [Suspect]
     Indication: DRUG USE FOR UNKNOWN INDICATION

REACTIONS (9)
  - ABDOMINAL PAIN UPPER [None]
  - CONVULSION [None]
  - DIARRHOEA [None]
  - DRUG INTERACTION [None]
  - DYSPNOEA [None]
  - MUSCLE TWITCHING [None]
  - PAIN IN EXTREMITY [None]
  - PUPIL FIXED [None]
  - VOMITING [None]
